FAERS Safety Report 18487036 (Version 1)
Quarter: 2020Q4

REPORT INFORMATION
  Report Type: Report from Study
  Country: US (occurrence: US)
  Receive Date: 20201110
  Receipt Date: 20201110
  Transmission Date: 20210114
  Serious: Yes (Other)
  Sender: FDA-Public Use
  Company Number: US-IPSEN BIOPHARMACEUTICALS, INC.-2020-18079

PATIENT
  Age: 55 Year
  Sex: Female
  Weight: 71.9 kg

DRUGS (10)
  1. SOMATULINE DEPOT [Suspect]
     Active Substance: LANREOTIDE ACETATE
     Indication: ACROMEGALY
     Dosage: 60MG/0.2ML
     Route: 058
     Dates: start: 2016, end: 20200714
  2. CANNABIDIOL [Concomitant]
     Active Substance: CANNABIDIOL
     Indication: INSOMNIA
     Dosage: 30 MINUTES PRIOR TO MEAL
  3. EFFEXOR XR [Concomitant]
     Active Substance: VENLAFAXINE HYDROCHLORIDE
  4. FISH OIL [Concomitant]
     Active Substance: FISH OIL
  5. TURMERIC CURCUMIN [Concomitant]
     Active Substance: HERBALS\TURMERIC
     Dosage: 5-1000 MG 30 MINUTES PRIOR TO MEAL
  6. LEVOTHYROXINE. [Concomitant]
     Active Substance: LEVOTHYROXINE
     Indication: HYPOTHYROIDISM
     Dosage: IN AM
  7. MAGNESIUM OXIDE. [Concomitant]
     Active Substance: MAGNESIUM OXIDE
  8. CALCIUM CARBONATE. [Concomitant]
     Active Substance: CALCIUM CARBONATE
     Dosage: CHEW
  9. EFFEXOR XR [Concomitant]
     Active Substance: VENLAFAXINE HYDROCHLORIDE
  10. BIFIDOBACTERIUM-LACTOBACILLUS [Concomitant]

REACTIONS (3)
  - Ventricular extrasystoles [Unknown]
  - Dizziness [Unknown]
  - Bradycardia [Unknown]
